FAERS Safety Report 9751527 (Version 1)
Quarter: 2013Q4

REPORT INFORMATION
  Report Type: Spontaneous
  Country: US (occurrence: US)
  Receive Date: 20131212
  Receipt Date: 20131212
  Transmission Date: 20140711
  Serious: No
  Sender: FDA-Public Use
  Company Number: US-PURDUE-USA-2013-0103354

PATIENT
  Sex: Female

DRUGS (1)
  1. DILAUDID TABLET [Suspect]
     Indication: PRODUCT USED FOR UNKNOWN INDICATION
     Dosage: 4 MG, BID
     Route: 048

REACTIONS (9)
  - Splenomegaly [Unknown]
  - Breast pain [Unknown]
  - Musculoskeletal chest pain [Unknown]
  - Weight decreased [Unknown]
  - Abdominal pain upper [Unknown]
  - Constipation [Unknown]
  - Decreased appetite [Unknown]
  - Headache [Unknown]
  - Drug ineffective [Unknown]
